FAERS Safety Report 10092520 (Version 1)
Quarter: 2014Q2

REPORT INFORMATION
  Report Type: Spontaneous
  Country: US (occurrence: US)
  Receive Date: 20140421
  Receipt Date: 20140421
  Transmission Date: 20141212
  Serious: No
  Sender: FDA-Public Use
  Company Number: US-SANOFI-AVENTIS-2013SA050987

PATIENT
  Age: 72 Year
  Sex: Male

DRUGS (2)
  1. ALLEGRA 24 HOUR [Suspect]
     Indication: HYPERSENSITIVITY
     Route: 048
  2. ALLEGRA 24 HOUR [Suspect]
     Indication: NASAL CONGESTION
     Route: 048

REACTIONS (2)
  - Blood pressure increased [Not Recovered/Not Resolved]
  - Pulmonary congestion [Not Recovered/Not Resolved]
